FAERS Safety Report 9659136 (Version 3)
Quarter: 2013Q4

REPORT INFORMATION
  Report Type: Spontaneous
  Country: US (occurrence: US)
  Receive Date: 20131031
  Receipt Date: 20131111
  Transmission Date: 20140711
  Serious: Yes (Death)
  Sender: FDA-Public Use
  Company Number: US-009507513-1310USA010346

PATIENT
  Sex: Female

DRUGS (7)
  1. VICTRELIS [Suspect]
     Indication: HEPATITIS A
     Dosage: 800MG, THREE TIMES A DAY WITH MEALS
     Route: 048
     Dates: start: 20130620, end: 2013
  2. REBETOL [Suspect]
     Route: 048
  3. PEGASYS [Suspect]
  4. IBUPROFEN [Concomitant]
  5. NEURONTIN [Concomitant]
  6. ZANTAC [Concomitant]
  7. ZOFRAN [Concomitant]

REACTIONS (1)
  - Death [Fatal]
